FAERS Safety Report 4861899-8 (Version None)
Quarter: 2005Q4

REPORT INFORMATION
  Report Type: 
  Country: None (occurrence: None)
  Receive Date: 20051129
  Receipt Date: 20050919
  Transmission Date: 20060501
  Serious: Yes (Hospitalization)
  Sender: FDA-Public Use
  Company Number: WAES 0509USA02826

PATIENT
  Age: 25 Year
  Sex: Female

DRUGS (1)
  1. ZETIA [Suspect]
     Indication: BLOOD CHOLESTEROL INCREASED
     Dosage: 10MG, PO
     Route: 048
     Dates: start: 20040920

REACTIONS (1)
  - CHOLELITHIASIS [None]
